FAERS Safety Report 24617438 (Version 1)
Quarter: 2024Q4

REPORT INFORMATION
  Report Type: Report from Study
  Country: CA (occurrence: CA)
  Receive Date: 20241114
  Receipt Date: 20241114
  Transmission Date: 20250115
  Serious: Yes (Other)
  Sender: BIOGEN
  Company Number: CA-BIOGEN-2023BI01209202

PATIENT
  Sex: Male

DRUGS (1)
  1. SPINRAZA [Suspect]
     Active Substance: NUSINERSEN
     Indication: Spinal muscular atrophy
     Dosage: 0DAYS, 14DAYS,14DAYS, 30 DAYS, EVERY 4 MONTHS
     Route: 050
     Dates: start: 20230523

REACTIONS (1)
  - Autism spectrum disorder [Unknown]
